FAERS Safety Report 24373078 (Version 5)
Quarter: 2024Q4

REPORT INFORMATION
  Report Type: Report from Study
  Country: US (occurrence: US)
  Receive Date: 20240927
  Receipt Date: 20241216
  Transmission Date: 20250114
  Serious: Yes (Other)
  Sender: SUNOVION
  Company Number: US-SUMITOMO PHARMA SWITZERLAND GMBH-2024SPA002558

PATIENT

DRUGS (1)
  1. ORGOVYX [Suspect]
     Active Substance: RELUGOLIX
     Indication: Prostate cancer
     Dosage: 120 MG, QD
     Route: 048
     Dates: start: 20240820

REACTIONS (8)
  - Atrial fibrillation [Unknown]
  - Tachycardia [Unknown]
  - Plantar fasciitis [Unknown]
  - Body temperature increased [Unknown]
  - Lethargy [Unknown]
  - Hot flush [Unknown]
  - Pain in extremity [Unknown]
  - Incorrect dose administered [Unknown]
